FAERS Safety Report 5474757-5 (Version None)
Quarter: 2007Q4

REPORT INFORMATION
  Report Type: 
  Country: None (occurrence: None)
  Receive Date: 20071002
  Receipt Date: 20070927
  Transmission Date: 20080405
  Serious: Yes (Life-Threatening, Hospitalization, Other)
  Sender: FDA-Public Use
  Company Number: A0684696A

PATIENT
  Age: 52 Year
  Sex: Female

DRUGS (10)
  1. COREG CR [Suspect]
     Dosage: 40MG PER DAY
     Route: 048
     Dates: start: 20070719
  2. WARFARIN SODIUM [Concomitant]
  3. COZAAR [Concomitant]
  4. PROTONIX [Concomitant]
  5. LASIX [Concomitant]
  6. ACTOS [Concomitant]
  7. K-DUR 10 [Concomitant]
  8. LIPITOR [Concomitant]
  9. ASPIRIN [Concomitant]
  10. ZAROXOLYN [Concomitant]

REACTIONS (1)
  - INTERNATIONAL NORMALISED RATIO INCREASED [None]
